FAERS Safety Report 7382461-1 (Version None)
Quarter: 2011Q1

REPORT INFORMATION
  Report Type: 
  Country: None (occurrence: None)
  Receive Date: 20110329
  Receipt Date: 20110315
  Transmission Date: 20110831
  Serious: Yes (Hospitalization)
  Sender: FDA-Public Use
  Company Number: US-BAYER-2011-024655

PATIENT
  Age: 60 Year
  Sex: Female
  Weight: 143 kg

DRUGS (3)
  1. LASIX [Concomitant]
  2. ALKA-SELTZER PLUS COLD MEDICINE ORIGINAL [Suspect]
     Indication: NASOPHARYNGITIS
     Dosage: 2 DF, TID
     Route: 048
     Dates: start: 20110101
  3. LASIX [Concomitant]
     Dosage: UNK
     Route: 042
     Dates: start: 20110301

REACTIONS (5)
  - THIRST [None]
  - DYSPNOEA [None]
  - WEIGHT INCREASED [None]
  - CHEST PAIN [None]
  - CARDIAC FAILURE [None]
